FAERS Safety Report 20496725 (Version 1)
Quarter: 2022Q1

REPORT INFORMATION
  Report Type: Report from Study
  Country: FR (occurrence: FR)
  Receive Date: 20220221
  Receipt Date: 20220221
  Transmission Date: 20220423
  Serious: Yes (Death, Hospitalization, Other)
  Sender: FDA-Public Use
  Company Number: FR-BRISTOL-MYERS SQUIBB COMPANY-BMS-2022-024946

PATIENT
  Age: 51 Year
  Sex: Male
  Weight: 70 kg

DRUGS (12)
  1. NIVOLUMAB [Suspect]
     Active Substance: NIVOLUMAB
     Indication: Glioblastoma
     Dosage: 3 MILLIGRAM/KILOGRAM, Q2WK
     Route: 042
     Dates: start: 20210309, end: 20211228
  2. INVESTIGATIONAL PRODUCT [Suspect]
     Active Substance: INVESTIGATIONAL PRODUCT
     Indication: Glioblastoma
     Dosage: 1.2 MILLIGRAM, Q2WK
     Route: 058
     Dates: start: 20210309, end: 20210519
  3. INVESTIGATIONAL PRODUCT [Suspect]
     Active Substance: INVESTIGATIONAL PRODUCT
     Dosage: 1.2 MILLIGRAM, Q4WK
     Route: 058
     Dates: start: 20210615, end: 20211228
  4. TRAMETINIB [Suspect]
     Active Substance: TRAMETINIB
     Indication: Targeted cancer therapy
     Dosage: 2 MILLIGRAM, QD
     Route: 048
     Dates: start: 20220127
  5. DABRAFENIB [Suspect]
     Active Substance: DABRAFENIB
     Indication: Targeted cancer therapy
     Dosage: 150 MILLIGRAM, BID
     Route: 048
     Dates: start: 20220127
  6. KEPPRA [Concomitant]
     Active Substance: LEVETIRACETAM
     Indication: Seizure prophylaxis
     Dosage: 1 GRAM, BID
     Route: 048
     Dates: start: 202003
  7. HYDROCORTISONE [Concomitant]
     Active Substance: HYDROCORTISONE
     Indication: Steroid therapy
     Dosage: 30 MILLIGRAM, QD
     Route: 048
     Dates: start: 20210224, end: 20211014
  8. HYDROCORTISONE [Concomitant]
     Active Substance: HYDROCORTISONE
     Dosage: 20 MILLIGRAM, QD
     Route: 048
     Dates: start: 20211014
  9. LANSOPRAZOLE [Concomitant]
     Active Substance: LANSOPRAZOLE
     Indication: Prophylaxis
     Dosage: 15 MILLIGRAM, QD
     Route: 048
     Dates: start: 202003
  10. DOLIPRANE [Concomitant]
     Active Substance: ACETAMINOPHEN
     Indication: Headache
     Dosage: 1 GRAM AS NECESSARY
     Route: 048
     Dates: start: 20210601
  11. PFIZER-BIONTECH COVID-19 VACCINE [Concomitant]
     Active Substance: TOZINAMERAN
     Indication: Product used for unknown indication
     Dosage: UNK
     Route: 065
     Dates: start: 20210603
  12. PFIZER-BIONTECH COVID-19 VACCINE [Concomitant]
     Active Substance: TOZINAMERAN
     Dosage: UNK
     Route: 065
     Dates: start: 20210713

REACTIONS (1)
  - Urosepsis [Fatal]

NARRATIVE: CASE EVENT DATE: 20220212
